FAERS Safety Report 9308036 (Version 1)
Quarter: 2013Q2

REPORT INFORMATION
  Report Type: Spontaneous
  Country: US (occurrence: US)
  Receive Date: 20130524
  Receipt Date: 20130524
  Transmission Date: 20140414
  Serious: No
  Sender: FDA-Public Use
  Company Number: US-GLAXOSMITHKLINE-A0984456A

PATIENT
  Sex: Male

DRUGS (1)
  1. BACTROBAN [Suspect]
     Indication: CELLULITIS
     Dosage: 1APP THREE TIMES PER DAY
     Route: 061
     Dates: start: 201204

REACTIONS (1)
  - Drug ineffective [Not Recovered/Not Resolved]
